FAERS Safety Report 9052406 (Version 1)
Quarter: 2013Q1

REPORT INFORMATION
  Report Type: Spontaneous
  Country: US (occurrence: US)
  Receive Date: 20130207
  Receipt Date: 20130207
  Transmission Date: 20140127
  Serious: Yes (Death)
  Sender: FDA-Public Use
  Company Number: PHEH2013US003057

PATIENT
  Sex: Male

DRUGS (2)
  1. NEORAL [Suspect]
     Dosage: 6 DF, QD
     Route: 048
  2. MYFORTIC [Concomitant]
     Dosage: 4 DF, DAILY

REACTIONS (1)
  - Death [Fatal]
